FAERS Safety Report 4359758-2 (Version None)
Quarter: 2004Q2

REPORT INFORMATION
  Report Type: 
  Country: None (occurrence: None)
  Receive Date: 20040512
  Receipt Date: 20040430
  Transmission Date: 20050107
  Serious: No
  Sender: FDA-Public Use
  Company Number: 2004UW08930

PATIENT
  Sex: Female

DRUGS (2)
  1. NOLVADEX [Suspect]
     Indication: BREAST CANCER
     Dates: start: 20020301, end: 20031101
  2. ARIMIDEX [Concomitant]

REACTIONS (1)
  - BLINDNESS UNILATERAL [None]
